FAERS Safety Report 12725210 (Version 1)
Quarter: 2016Q3

REPORT INFORMATION
  Report Type: Spontaneous
  Country: US (occurrence: US)
  Receive Date: 20160905
  Receipt Date: 20160905
  Transmission Date: 20161109
  Serious: Yes (Disabling)
  Sender: FDA-Public Use
  Company Number: None

PATIENT
  Age: 25 Year
  Sex: Female
  Weight: 59.85 kg

DRUGS (2)
  1. CIPROFLOXACIN. [Suspect]
     Active Substance: CIPROFLOXACIN
     Indication: URINARY TRACT INFECTION
     Route: 048
     Dates: start: 20160812
  2. LAXATIVE [Concomitant]
     Active Substance: UNSPECIFIED INGREDIENT

REACTIONS (22)
  - Hypersomnia [None]
  - Abdominal pain upper [None]
  - Impaired work ability [None]
  - Constipation [None]
  - Rash papular [None]
  - Skin warm [None]
  - Chills [None]
  - Peripheral swelling [None]
  - Eye swelling [None]
  - Aptyalism [None]
  - Decreased appetite [None]
  - Headache [None]
  - Dry mouth [None]
  - Skin exfoliation [None]
  - Fatigue [None]
  - Rash pruritic [None]
  - Nocturia [None]
  - Dry eye [None]
  - Head discomfort [None]
  - Pyrexia [None]
  - Pain [None]
  - Blood phosphorus decreased [None]

NARRATIVE: CASE EVENT DATE: 20160813
